FAERS Safety Report 9768467 (Version 1)
Quarter: 2013Q4

REPORT INFORMATION
  Report Type: Spontaneous
  Country: US (occurrence: US)
  Receive Date: 20131217
  Receipt Date: 20131217
  Transmission Date: 20140711
  Serious: Yes (Hospitalization, Other)
  Sender: FDA-Public Use
  Company Number: US-PFIZER INC-2013354193

PATIENT
  Age: 56 Year
  Sex: Male

DRUGS (2)
  1. BOSULIF [Suspect]
     Indication: BRONCHIAL NEOPLASM
     Dosage: 300 MG, UNK
     Dates: start: 20130116
  2. BOSULIF [Suspect]
     Indication: LUNG NEOPLASM MALIGNANT

REACTIONS (5)
  - Myocardial infarction [Unknown]
  - Convulsion [Unknown]
  - Off label use [Unknown]
  - Pyrexia [Unknown]
  - Platelet count decreased [Not Recovered/Not Resolved]
